FAERS Safety Report 14385054 (Version 6)
Quarter: 2018Q2

REPORT INFORMATION
  Report Type: Spontaneous
  Country: FR (occurrence: FR)
  Receive Date: 20180115
  Receipt Date: 20180511
  Transmission Date: 20180711
  Serious: Yes (Hospitalization, Disabling)
  Sender: FDA-Public Use
  Company Number: FR-CONCORDIA PHARMACEUTICALS INC.-E2B_00009487

PATIENT
  Age: 37 Year
  Sex: Male
  Weight: 80 kg

DRUGS (11)
  1. IOPAMIRON [Suspect]
     Active Substance: IOPAMIDOL
     Indication: DISCOGRAM
     Route: 024
     Dates: start: 20170627, end: 20170627
  2. IOPAMIRON [Suspect]
     Active Substance: IOPAMIDOL
     Indication: DISCOGRAM
     Dosage: STRENGTH: 300MG OF IODINE/ML?ROUTE: IDI
     Dates: start: 20170626, end: 20170626
  3. LIDOCAINE. [Concomitant]
     Active Substance: LIDOCAINE
  4. PREDNISOLONE. [Suspect]
     Active Substance: PREDNISOLONE
     Indication: BACK PAIN
     Route: 024
     Dates: start: 20170627, end: 20170627
  5. PREDNISOLONE. [Suspect]
     Active Substance: PREDNISOLONE
     Indication: BACK PAIN
     Route: 024
     Dates: start: 20170627, end: 20170627
  6. XYLOCAINE [Suspect]
     Active Substance: LIDOCAINE HYDROCHLORIDE
     Indication: LOCAL ANAESTHESIA
     Dosage: DOSE:10 MILLIGRAM(S)/MILLILITRE
     Route: 058
     Dates: start: 20170626, end: 20170626
  7. PREDNISOLONE. [Suspect]
     Active Substance: PREDNISOLONE
     Indication: BACK PAIN
     Dosage: ROUTE: IDI
     Route: 024
     Dates: start: 20170626, end: 20170626
  8. XYLOCAINE [Suspect]
     Active Substance: LIDOCAINE HYDROCHLORIDE
     Indication: DISCOGRAM
     Dosage: DOSE:10 MILLIGRAM(S)/MILLILITRE
     Route: 030
     Dates: start: 20170627, end: 20170627
  9. XYLOCAINE [Suspect]
     Active Substance: LIDOCAINE HYDROCHLORIDE
     Indication: DISCOGRAM
     Dosage: DOSE:10 MILLIGRAM(S)/MILLILITRE
     Route: 058
     Dates: start: 20170626, end: 20170626
  10. XYLOCAINE [Suspect]
     Active Substance: LIDOCAINE HYDROCHLORIDE
     Indication: LOCAL ANAESTHESIA
     Dosage: DOSE:10 MILLIGRAM(S)/MILLILITRE
     Route: 030
     Dates: start: 20170627, end: 20170627
  11. PREDNISOLONE. [Suspect]
     Active Substance: PREDNISOLONE
     Indication: BACK PAIN
     Dosage: ROUTE: IDI
     Route: 024
     Dates: start: 20170626, end: 20170626

REACTIONS (8)
  - Spinal cord ischaemia [Unknown]
  - Burning sensation [Not Recovered/Not Resolved]
  - Sensory loss [Not Recovered/Not Resolved]
  - Pain in extremity [Unknown]
  - Bladder dysfunction [Not Recovered/Not Resolved]
  - Motor dysfunction [Not Recovered/Not Resolved]
  - Paraplegia [Not Recovered/Not Resolved]
  - Pelvic pain [Unknown]

NARRATIVE: CASE EVENT DATE: 20170627
